FAERS Safety Report 7002528-7 (Version None)
Quarter: 2010Q3

REPORT INFORMATION
  Report Type: 
  Country: None (occurrence: None)
  Receive Date: 20100920
  Receipt Date: 20090922
  Transmission Date: 20110219
  Serious: No
  Sender: FDA-Public Use
  Company Number: US-ASTRAZENECA-2009SE14711

PATIENT
  Age: 18673 Day
  Sex: Female
  Weight: 89.4 kg

DRUGS (13)
  1. SEROQUEL [Suspect]
     Indication: BIPOLAR DISORDER
     Route: 048
  2. SEROQUEL [Suspect]
     Indication: SCHIZOPHRENIA
     Route: 048
  3. SEROQUEL [Suspect]
     Route: 048
     Dates: start: 20090827
  4. SEROQUEL [Suspect]
     Route: 048
     Dates: start: 20090827
  5. SEROQUEL [Suspect]
     Route: 048
     Dates: start: 20090921
  6. SEROQUEL [Suspect]
     Route: 048
     Dates: start: 20090921
  7. MORPHINE [Concomitant]
     Indication: PAIN
  8. NEXIUM [Concomitant]
     Indication: GASTROOESOPHAGEAL REFLUX DISEASE
  9. OXYCODONE HCL [Concomitant]
     Indication: PAIN
  10. LEVOTHYROXINE SODIUM [Concomitant]
     Indication: THYROID DISORDER
  11. ASPIRIN [Concomitant]
  12. SIMVASTATIN [Concomitant]
     Indication: BLOOD CHOLESTEROL ABNORMAL
  13. CLONAZEPAM [Concomitant]

REACTIONS (2)
  - BACK PAIN [None]
  - PAIN IN EXTREMITY [None]
